FAERS Safety Report 12644046 (Version 4)
Quarter: 2016Q3

REPORT INFORMATION
  Report Type: Spontaneous
  Country: US (occurrence: US)
  Receive Date: 20160811
  Receipt Date: 20160915
  Transmission Date: 20161109
  Serious: Yes (Other)
  Sender: FDA-Public Use
  Company Number: US-CELGENEUS-USA-2016081843

PATIENT
  Sex: Male
  Weight: 100.33 kg

DRUGS (1)
  1. REVLIMID [Suspect]
     Active Substance: LENALIDOMIDE
     Indication: MYELODYSPLASTIC SYNDROME
     Dosage: 10 MILLIGRAM
     Route: 048
     Dates: start: 20160728

REACTIONS (7)
  - Pain [Unknown]
  - Tooth infection [Unknown]
  - White blood cell count decreased [Unknown]
  - Tooth fracture [Unknown]
  - Platelet count decreased [Unknown]
  - Amnesia [Unknown]
  - Foot fracture [Unknown]

NARRATIVE: CASE EVENT DATE: 2016
